FAERS Safety Report 8105643-X (Version None)
Quarter: 2012Q1

REPORT INFORMATION
  Report Type: 
  Country: None (occurrence: None)
  Receive Date: 20120201
  Receipt Date: 20120116
  Transmission Date: 20120608
  Serious: Yes (Other)
  Sender: FDA-Public Use
  Company Number: CHPA2012US002248

PATIENT
  Sex: Female

DRUGS (1)
  1. GAS-X PREVENTION [Suspect]
     Dosage: UNK , UNK
     Route: 048

REACTIONS (2)
  - HALLUCINATION, AUDITORY [None]
  - VISUAL IMPAIRMENT [None]
